FAERS Safety Report 19576762 (Version 1)
Quarter: 2021Q3

REPORT INFORMATION
  Report Type: Report from Study
  Country: CO (occurrence: CO)
  Receive Date: 20210719
  Receipt Date: 20210719
  Transmission Date: 20211014
  Serious: Yes (Death, Hospitalization, Other)
  Sender: FDA-Public Use
  Company Number: CO-ASTELLAS-2021US007434

PATIENT
  Age: 68 Year
  Sex: Male

DRUGS (6)
  1. TACROLIMUS. [Suspect]
     Active Substance: TACROLIMUS
     Dosage: 2 MG, EVERY 12 HOURS (2 MG IN MORNING AND 2 MG IN NIGHT) (1 MG CAPSULE)
     Route: 048
     Dates: end: 20210215
  2. TACROLIMUS. [Suspect]
     Active Substance: TACROLIMUS
     Route: 048
     Dates: end: 20210315
  3. TACROLIMUS. [Suspect]
     Active Substance: TACROLIMUS
     Dosage: 2 MG IN MORNING AND 1 MG IN EVENING, UNKNOWN FREQ. UNKNOWN FREQ.
     Route: 048
     Dates: start: 20210216
  4. PREDNISOLONE. [Concomitant]
     Active Substance: PREDNISOLONE
     Indication: PRODUCT USED FOR UNKNOWN INDICATION
     Dosage: 3 DF, ONCE DAILY (3 TABLETS, EVERY 24 HOURS)
     Route: 065
  5. MYCOPHENOLATE MOFETIL. [Concomitant]
     Active Substance: MYCOPHENOLATE MOFETIL
     Indication: PRODUCT USED FOR UNKNOWN INDICATION
     Dosage: 2 DF, EVERY 12 HOURS (2 TABLETS)
     Route: 065
  6. TACROLIMUS. [Suspect]
     Active Substance: TACROLIMUS
     Indication: RENAL TRANSPLANT
     Route: 048
     Dates: start: 20201211

REACTIONS (5)
  - Tremor [Recovered/Resolved]
  - Inappropriate schedule of product administration [Unknown]
  - Pneumonia [Fatal]
  - Back pain [Fatal]
  - Diarrhoea [Fatal]

NARRATIVE: CASE EVENT DATE: 20201225
